FAERS Safety Report 4745345-0 (Version None)
Quarter: 2005Q3

REPORT INFORMATION
  Report Type: 
  Country: None (occurrence: None)
  Receive Date: 20050815
  Receipt Date: 20050802
  Transmission Date: 20060218
  Serious: Yes (Hospitalization)
  Sender: FDA-Public Use
  Company Number: 05-08-1355

PATIENT
  Age: 75 Year
  Sex: Female

DRUGS (2)
  1. METFORMIN [Suspect]
     Indication: DIABETES MELLITUS
     Dosage: 1 GRAM TID
  2. DICLOFENAC [Suspect]
     Indication: CHOLELITHIASIS
     Dosage: 50 MG TID

REACTIONS (15)
  - ABDOMINAL ABSCESS [None]
  - BACILLUS INFECTION [None]
  - CHOLELITHIASIS [None]
  - CONFUSIONAL STATE [None]
  - GALLBLADDER PERFORATION [None]
  - HAEMODIALYSIS [None]
  - HYPOTHERMIA [None]
  - HYPOVOLAEMIA [None]
  - METABOLIC ACIDOSIS [None]
  - POLYURIA [None]
  - RENAL FAILURE ACUTE [None]
  - RESPIRATORY FAILURE [None]
  - SEPSIS [None]
  - SYNCOPE [None]
  - VASOCONSTRICTION [None]
